FAERS Safety Report 19929003 (Version 4)
Quarter: 2021Q4

REPORT INFORMATION
  Report Type: Report from Study
  Country: US (occurrence: US)
  Receive Date: 20211007
  Receipt Date: 20211126
  Transmission Date: 20220303
  Serious: No
  Sender: FDA-Public Use
  Company Number: NVSC2021US229169

PATIENT
  Sex: Male

DRUGS (1)
  1. ENTRESTO [Suspect]
     Active Substance: SACUBITRIL\VALSARTAN
     Indication: Cardiac failure
     Dosage: UNK, BID
     Route: 048

REACTIONS (10)
  - Weight increased [Unknown]
  - Fluid retention [Unknown]
  - Peripheral swelling [Unknown]
  - Pollakiuria [Unknown]
  - Palpitations [Unknown]
  - Dry throat [Unknown]
  - Throat clearing [Unknown]
  - Oropharyngeal pain [Unknown]
  - Cough [Unknown]
  - Dizziness [Recovered/Resolved]
